FAERS Safety Report 15480482 (Version 1)
Quarter: 2018Q4

REPORT INFORMATION
  Report Type: Spontaneous
  Country: US (occurrence: US)
  Receive Date: 20181009
  Receipt Date: 20181009
  Transmission Date: 20190205
  Serious: Yes (Other)
  Sender: FDA-Public Use
  Company Number: US-BAXTER-2018BAX025393

PATIENT
  Age: 18 Year
  Sex: Male

DRUGS (8)
  1. VASOPRESSIN. [Suspect]
     Active Substance: VASOPRESSIN
     Indication: VASOPLEGIA SYNDROME
     Dosage: ON POD2 (0.04 UNITS/MIN). WEANED 43 HOURS LATER.
     Route: 041
  2. EPINEPHRINE. [Suspect]
     Active Substance: EPINEPHRINE
     Indication: VASOPLEGIA SYNDROME
     Dosage: ON POD 2. ?WEANED 116 HOURS LATER.
     Route: 041
  3. FRESH FROZEN PLASMA [Concomitant]
     Active Substance: HUMAN PLASMA
     Indication: PROCEDURAL HAEMORRHAGE
     Dosage: 4 UNITS
     Route: 042
  4. PLATELETS [Concomitant]
     Active Substance: HUMAN PLATELET, ALLOGENIC
     Indication: PROCEDURAL HAEMORRHAGE
     Dosage: 2 UNITS
     Route: 042
  5. NOREPINEPHRINE BITARTRATE INJECTION, USP [Suspect]
     Active Substance: NOREPINEPHRINE BITARTRATE
     Indication: VASOPLEGIA SYNDROME
     Dosage: ON POD2 (ESCALATING DOSES UPTO 0.12 UG/KG/MIN), WEANED 18 HOURS LATER.
     Route: 041
  6. HYDROCORTISONE. [Concomitant]
     Active Substance: HYDROCORTISONE
     Indication: SHOCK
     Dosage: ON (POD2)
     Route: 042
  7. PACKED RED BLOOD CELLS [Concomitant]
     Active Substance: HUMAN RED BLOOD CELL
     Indication: PROCEDURAL HAEMORRHAGE
     Dosage: 10 UNITS
     Route: 042
  8. CRYOPRECIPITATE [Concomitant]
     Active Substance: CRYOPRECIPITATED ANTIHEMOPHILIC FACTOR (HUMAN)
     Indication: PROCEDURAL HAEMORRHAGE
     Dosage: 10 UNITS
     Route: 042

REACTIONS (1)
  - Drug ineffective [Unknown]
